FAERS Safety Report 4771716-2 (Version None)
Quarter: 2005Q3

REPORT INFORMATION
  Report Type: 
  Country: None (occurrence: None)
  Receive Date: 20050916
  Receipt Date: 20050907
  Transmission Date: 20060218
  Serious: Yes (Hospitalization)
  Sender: FDA-Public Use
  Company Number: PHBS2005JP13295

PATIENT
  Age: 85 Year
  Sex: 0

DRUGS (8)
  1. GLYBURIDE [Concomitant]
     Route: 048
  2. AMLODIN [Concomitant]
     Dosage: UNK, UNK
     Route: 048
  3. LONGES [Concomitant]
     Dosage: UNK, UNK
     Route: 048
  4. DIOVAN [Suspect]
     Dosage: 80 MG, QD
     Route: 048
  5. ASPIRIN [Concomitant]
     Route: 048
  6. CARDENALIN [Concomitant]
     Route: 048
  7. MECOBALAMIN [Concomitant]
     Route: 048
  8. NATEGLINIDE [Concomitant]
     Dosage: 90 MG, BID

REACTIONS (3)
  - BLOOD CREATININE ABNORMAL [None]
  - HYPOGLYCAEMIA [None]
  - LOSS OF CONSCIOUSNESS [None]
